FAERS Safety Report 7729207-2 (Version None)
Quarter: 2011Q3

REPORT INFORMATION
  Report Type: 
  Country: None (occurrence: None)
  Receive Date: 20110906
  Receipt Date: 20110831
  Transmission Date: 20111222
  Serious: Yes (Other)
  Sender: FDA-Public Use
  Company Number: US-PFIZER INC-2011204030

PATIENT
  Age: 49 Year
  Sex: Male

DRUGS (2)
  1. ASPIRIN [Concomitant]
     Dosage: 81 MG, UNK
  2. CELEBREX [Suspect]
     Dosage: 200 MG, 2X/DAY

REACTIONS (1)
  - GASTROINTESTINAL HAEMORRHAGE [None]
